FAERS Safety Report 12857153 (Version 2)
Quarter: 2016Q4

REPORT INFORMATION
  Report Type: Spontaneous
  Country: US (occurrence: US)
  Receive Date: 20161018
  Receipt Date: 20161102
  Transmission Date: 20170207
  Serious: No
  Sender: FDA-Public Use
  Company Number: US-GLAXOSMITHKLINE-US2016151483

PATIENT
  Age: 63 Year
  Sex: Female

DRUGS (1)
  1. ADVAIR DISKUS [Suspect]
     Active Substance: FLUTICASONE PROPIONATE\SALMETEROL XINAFOATE
     Indication: PRODUCT USED FOR UNKNOWN INDICATION
     Dosage: 500/50
     Dates: start: 20161013

REACTIONS (4)
  - Neck pain [Unknown]
  - Chest pain [Unknown]
  - Pain in jaw [Unknown]
  - Axillary pain [Unknown]

NARRATIVE: CASE EVENT DATE: 20161013
